FAERS Safety Report 8288104-7 (Version None)
Quarter: 2012Q2

REPORT INFORMATION
  Report Type: 
  Country: None (occurrence: None)
  Receive Date: 20120416
  Receipt Date: 20120406
  Transmission Date: 20120825
  Serious: Yes (Hospitalization, Other)
  Sender: FDA-Public Use
  Company Number: US-NAPPMUNDI-USA-2010-0042338

PATIENT
  Sex: Female

DRUGS (9)
  1. OXYCONTIN [Suspect]
     Indication: BACK PAIN
  2. OXYCONTIN [Suspect]
     Indication: ARTHRALGIA
     Dosage: 40 MG, TID
     Route: 048
     Dates: start: 19940101
  3. OXYCONTIN [Suspect]
     Indication: PAIN
  4. OXYCONTIN [Suspect]
     Indication: MYALGIA
     Dosage: 40 MG, TID
     Dates: start: 20080310
  5. OXYCONTIN [Suspect]
     Indication: NEURALGIA
  6. ZOCOR [Concomitant]
     Indication: PRODUCT USED FOR UNKNOWN INDICATION
  7. VALIUM [Concomitant]
     Indication: PRODUCT USED FOR UNKNOWN INDICATION
  8. CARAFATE [Concomitant]
     Indication: PRODUCT USED FOR UNKNOWN INDICATION
  9. ZANTAC [Concomitant]
     Indication: PRODUCT USED FOR UNKNOWN INDICATION

REACTIONS (9)
  - HYPERSOMNIA [None]
  - THINKING ABNORMAL [None]
  - OXYGEN SUPPLEMENTATION [None]
  - ACCIDENTAL OVERDOSE [None]
  - DRUG TOLERANCE INCREASED [None]
  - AMNESIA [None]
  - DRUG EFFECT DECREASED [None]
  - INADEQUATE ANALGESIA [None]
  - FEELING ABNORMAL [None]
